FAERS Safety Report 6043790-7 (Version None)
Quarter: 2009Q1

REPORT INFORMATION
  Report Type: 
  Country: None (occurrence: None)
  Receive Date: 20090120
  Receipt Date: 20090114
  Transmission Date: 20090719
  Serious: Yes (Life-Threatening)
  Sender: FDA-Public Use
  Company Number: PHHY2009FR01706

PATIENT
  Sex: Female

DRUGS (5)
  1. VOLTAREN [Suspect]
     Dosage: 50 MG, QD
     Dates: start: 20081029
  2. PIASCLEDINE [Concomitant]
     Dosage: 300 MG/DAY
  3. LODOZ [Concomitant]
     Dosage: 5 MG/6.5 MG
  4. PRAZEPAM [Concomitant]
     Dosage: 10 MG
  5. DOLIPRANE [Concomitant]
     Indication: PAIN
     Dosage: 1 G

REACTIONS (6)
  - EYELID OEDEMA [None]
  - GENERALISED ERYTHEMA [None]
  - LOSS OF CONSCIOUSNESS [None]
  - PARAESTHESIA [None]
  - SHOCK [None]
  - VOMITING [None]
